FAERS Safety Report 9961759 (Version 1)
Quarter: 2014Q1

REPORT INFORMATION
  Report Type: Report from Study
  Country: US (occurrence: US)
  Receive Date: 20140305
  Receipt Date: 20140305
  Transmission Date: 20141002
  Serious: No
  Sender: FDA-Public Use
  Company Number: US-ABBVIE-13P-163-1111224-00

PATIENT
  Sex: Female

DRUGS (16)
  1. HUMIRA [Suspect]
     Indication: RHEUMATOID ARTHRITIS
     Route: 058
     Dates: start: 2012
  2. DIOVAN HCT [Concomitant]
     Indication: HYPERTENSION
  3. DEXILANT [Concomitant]
     Indication: GASTROOESOPHAGEAL REFLUX DISEASE
  4. FOLIC ACID [Concomitant]
     Indication: VITAMIN SUPPLEMENTATION
  5. LUSUNOMIDE [Concomitant]
     Indication: RHEUMATOID ARTHRITIS
  6. HYDROXYCHLOROQUINE SULFATE [Concomitant]
     Indication: RHEUMATOID ARTHRITIS
  7. ATELVIA [Concomitant]
     Indication: BONE DISORDER
  8. ZYRTEC [Concomitant]
     Indication: SEASONAL ALLERGY
  9. VERAMYST [Concomitant]
     Indication: SEASONAL ALLERGY
  10. Q VAR [Concomitant]
     Indication: ASTHMA
  11. PRO AIR [Concomitant]
     Indication: ASTHMA
  12. VITAMIN D3 [Concomitant]
     Indication: VITAMIN SUPPLEMENTATION
  13. FISH OIL [Concomitant]
     Indication: MINERAL SUPPLEMENTATION
  14. VITAMIN C [Concomitant]
     Indication: VITAMIN SUPPLEMENTATION
  15. MULTIVITAMIN [Concomitant]
     Indication: VITAMIN SUPPLEMENTATION
  16. CALTRATE [Concomitant]
     Indication: MINERAL SUPPLEMENTATION

REACTIONS (2)
  - Wrong technique in drug usage process [Recovered/Resolved]
  - Injection site haemorrhage [Recovered/Resolved]
